FAERS Safety Report 4384425-9 (Version None)
Quarter: 2004Q2

REPORT INFORMATION
  Report Type: 
  Country: None (occurrence: None)
  Receive Date: 20040621
  Receipt Date: 20040608
  Transmission Date: 20050107
  Serious: Yes (Other)
  Sender: FDA-Public Use
  Company Number: 2004218487GB

PATIENT
  Sex: Male

DRUGS (1)
  1. DOSTINEX [Suspect]
     Indication: HYPERPROLACTINAEMIA
     Dosage: 9 YEARS TREATMENT, ORAL
     Route: 048

REACTIONS (2)
  - COUGH [None]
  - PULMONARY MASS [None]
